FAERS Safety Report 14927056 (Version 1)
Quarter: 2018Q2

REPORT INFORMATION
  Report Type: Spontaneous
  Country: DE (occurrence: DE)
  Receive Date: 20180523
  Receipt Date: 20180523
  Transmission Date: 20180711
  Serious: Yes (Hospitalization)
  Sender: FDA-Public Use
  Company Number: DE-CONCORDIA PHARMACEUTICALS INC.-E2B_00011769

PATIENT
  Age: 82 Year
  Sex: Female

DRUGS (14)
  1. EBRANTIL [Concomitant]
     Active Substance: URAPIDIL
     Dosage: 60 MG, 0-0-1-0
  2. IBUPROFEN. [Suspect]
     Active Substance: IBUPROFEN
     Dosage: 600 MG, 1-0-1-0
  3. CLOPIDOGREL [Suspect]
     Active Substance: CLOPIDOGREL BISULFATE
     Dosage: NK MG, 0-1-0-0
  4. CANDESARTAN. [Concomitant]
     Active Substance: CANDESARTAN
     Dosage: 16 MG, 1-0-1-0
  5. AMLODIPIN [Concomitant]
     Active Substance: AMLODIPINE BESYLATE
     Dosage: 10 MG, 0-0-1-0
  6. METAMIZOL [Concomitant]
     Active Substance: METAMIZOLE SODIUM
     Dosage: NK MG, BEDARF
  7. PANTOPRAZOL [Concomitant]
     Active Substance: PANTOPRAZOLE SODIUM
     Dosage: 40 MG, 0-0-1-0
  8. DEKRISTOL [Concomitant]
     Active Substance: CHOLECALCIFEROL
     Dosage: NK IE, ALLE 14 TAGE 1
  9. SIMVASTATIN. [Concomitant]
     Active Substance: SIMVASTATIN
     Dosage: 40 MG, 0-0-0-1
  10. TORASEMID [Concomitant]
     Active Substance: TORSEMIDE
     Dosage: 10 MG, 1.5-1-0-0
  11. TRAMADOL. [Concomitant]
     Active Substance: TRAMADOL
     Dosage: 200 MG, 0.5-0-0-0
  12. PREDNISOLONE. [Suspect]
     Active Substance: PREDNISOLONE
     Dosage: 2.5 MG, 0.5-0-0-0
  13. ELIQUIS [Suspect]
     Active Substance: APIXABAN
     Dosage: 2.5 MG, 1-0-1-0
  14. DOXEPIN [Concomitant]
     Active Substance: DOXEPIN
     Dosage: 25 MG, 0-0-0-0.5

REACTIONS (2)
  - Haematochezia [Unknown]
  - Abdominal pain upper [Unknown]
